FAERS Safety Report 13270009 (Version 2)
Quarter: 2017Q1

REPORT INFORMATION
  Report Type: Spontaneous
  Country: US (occurrence: US)
  Receive Date: 20170224
  Receipt Date: 20170307
  Transmission Date: 20170428
  Serious: No
  Sender: FDA-Public Use
  Company Number: US-BEH-2017078403

PATIENT
  Age: 9 Year
  Sex: Female

DRUGS (1)
  1. HIZENTRA [Suspect]
     Active Substance: HUMAN IMMUNOGLOBULIN G
     Indication: HYPOGAMMAGLOBULINAEMIA
     Dosage: 6 G, 30 ML, QW
     Route: 058
     Dates: start: 201504

REACTIONS (2)
  - Infusion site pain [Unknown]
  - Needle issue [Unknown]

NARRATIVE: CASE EVENT DATE: 20170210
